FAERS Safety Report 14346803 (Version 1)
Quarter: 2018Q1

REPORT INFORMATION
  Report Type: Spontaneous
  Country: US (occurrence: US)
  Receive Date: 20180103
  Receipt Date: 20180103
  Transmission Date: 20180509
  Serious: No
  Sender: FDA-Public Use
  Company Number: US-PFIZER INC-2018000318

PATIENT
  Age: 59 Year
  Sex: Female
  Weight: 55.34 kg

DRUGS (2)
  1. CIPROFLOXACIN HCL [Suspect]
     Active Substance: CIPROFLOXACIN HYDROCHLORIDE
     Indication: ANTIBIOTIC THERAPY
     Dosage: UNK
  2. XALKORI [Concomitant]
     Active Substance: CRIZOTINIB
     Dosage: UNK

REACTIONS (3)
  - Peripheral swelling [Recovered/Resolved]
  - Swelling face [Recovered/Resolved]
  - Pharyngeal oedema [Recovered/Resolved]

NARRATIVE: CASE EVENT DATE: 201712
